FAERS Safety Report 8359352-2 (Version None)
Quarter: 2012Q2

REPORT INFORMATION
  Report Type: 
  Country: None (occurrence: None)
  Receive Date: 20120515
  Receipt Date: 20120510
  Transmission Date: 20120825
  Serious: No
  Sender: FDA-Public Use
  Company Number: US-PFIZER INC-2012114742

PATIENT
  Sex: Female

DRUGS (1)
  1. SUTENT [Suspect]
     Indication: MALIGNANT URINARY TRACT NEOPLASM
     Dosage: (1)12.5 MG AND (1) 25 MG TABLET DAILY

REACTIONS (2)
  - DISEASE PROGRESSION [None]
  - MALIGNANT URINARY TRACT NEOPLASM [None]
